FAERS Safety Report 14191221 (Version 1)
Quarter: 2017Q4

REPORT INFORMATION
  Report Type: Report from Study
  Country: KR (occurrence: KR)
  Receive Date: 20171115
  Receipt Date: 20171115
  Transmission Date: 20180321
  Serious: No
  Sender: FDA-Public Use
  Company Number: KR-B.I. PHARMACEUTICALS,INC./RIDGEFIELD-2017-BI-060515

PATIENT
  Age: 57 Year
  Sex: Female
  Weight: 68 kg

DRUGS (6)
  1. LIPILOU [Concomitant]
     Indication: DYSLIPIDAEMIA
     Route: 048
     Dates: start: 20161227
  2. THIOCTACID HR [Concomitant]
     Indication: PROPHYLAXIS
     Route: 048
     Dates: start: 20111216
  3. JARDIANCE [Suspect]
     Active Substance: EMPAGLIFLOZIN
     Indication: TYPE 2 DIABETES MELLITUS
     Route: 048
     Dates: start: 20170703
  4. THIOCTACID HR [Concomitant]
     Indication: NEURALGIA
  5. GLUCOPHAGE [Concomitant]
     Active Substance: METFORMIN HYDROCHLORIDE
     Indication: TYPE 2 DIABETES MELLITUS
     Route: 048
     Dates: start: 20140821
  6. OMACOR [Concomitant]
     Active Substance: OMEGA-3-ACID ETHYL ESTERS
     Indication: DYSLIPIDAEMIA
     Route: 048
     Dates: start: 20130524

REACTIONS (1)
  - Vaginal infection [Not Recovered/Not Resolved]

NARRATIVE: CASE EVENT DATE: 201708
